FAERS Safety Report 20541208 (Version 1)
Quarter: 2022Q1

REPORT INFORMATION
  Report Type: Report from Study
  Country: CA (occurrence: CA)
  Receive Date: 20220302
  Receipt Date: 20220302
  Transmission Date: 20220423
  Serious: Yes (Other)
  Sender: FDA-Public Use
  Company Number: CA-JNJFOC-20211026899

PATIENT
  Age: 28 Year
  Sex: Female

DRUGS (2)
  1. STELARA [Suspect]
     Active Substance: USTEKINUMAB
     Indication: Colitis ulcerative
     Dosage: RECEIVED FIRST INFUSION ON 24/JUN/2021 AND FIRST INJECTION ON 18/AUG/2018?ON 13-OCT-2021, THE PATIEN
     Route: 058
     Dates: start: 20210624
  2. STELARA [Suspect]
     Active Substance: USTEKINUMAB
     Route: 058
     Dates: start: 2021

REACTIONS (7)
  - Haemorrhage [Recovering/Resolving]
  - Uterine cancer [Unknown]
  - Muscle spasms [Recovering/Resolving]
  - Drug ineffective [Unknown]
  - Frequent bowel movements [Recovering/Resolving]
  - Off label use [Unknown]
  - Product use issue [Unknown]

NARRATIVE: CASE EVENT DATE: 20210101
